FAERS Safety Report 5490839-6 (Version None)
Quarter: 2007Q4

REPORT INFORMATION
  Report Type: 
  Country: None (occurrence: None)
  Receive Date: 20071019
  Receipt Date: 20071010
  Transmission Date: 20080405
  Serious: Yes (Hospitalization, Other)
  Sender: FDA-Public Use
  Company Number: JP-MERCK-0707USA04781

PATIENT
  Age: 21 Year
  Sex: Female

DRUGS (2)
  1. ALDOMET [Suspect]
     Route: 048
  2. ALDOMET [Suspect]
     Route: 048

REACTIONS (5)
  - BLOOD PRESSURE INCREASED [None]
  - BREECH PRESENTATION [None]
  - DRUG EXPOSURE DURING PREGNANCY [None]
  - GLOMERULONEPHRITIS CHRONIC [None]
  - PROTEIN URINE PRESENT [None]
